FAERS Safety Report 22102050 (Version 1)
Quarter: 2023Q1

REPORT INFORMATION
  Report Type: Spontaneous
  Country: MV (occurrence: MV)
  Receive Date: 20230316
  Receipt Date: 20230316
  Transmission Date: 20230418
  Serious: Yes (Hospitalization)
  Sender: FDA-Public Use
  Company Number: MV-GLENMARK PHARMACEUTICALS-2023GMK080002

PATIENT

DRUGS (2)
  1. ESOMEPRAZOLE MAGNESIUM [Suspect]
     Active Substance: ESOMEPRAZOLE MAGNESIUM
     Indication: Dental implantation
     Dosage: UNK UNK, OD
     Route: 048
     Dates: start: 20230314, end: 20230314
  2. BACTOCLAV [AMOXICILLIN SODIUM;CLAVULANATE POTASSIUM] [Concomitant]
     Indication: Dental implantation
     Dosage: 1 DOSAGE FORM, BID
     Route: 048
     Dates: start: 20230314

REACTIONS (4)
  - Swelling face [Recovered/Resolved]
  - Rash pruritic [Recovered/Resolved]
  - Hypersensitivity [Recovered/Resolved]
  - Product use in unapproved indication [Unknown]

NARRATIVE: CASE EVENT DATE: 20230314
